FAERS Safety Report 4325473-4 (Version None)
Quarter: 2004Q1

REPORT INFORMATION
  Report Type: 
  Country: None (occurrence: None)
  Receive Date: 20040324
  Receipt Date: 20040312
  Transmission Date: 20041129
  Serious: Yes (Death)
  Sender: FDA-Public Use
  Company Number: US-JNJFOC-20040303843

PATIENT
  Age: 84 Year
  Sex: Female

DRUGS (1)
  1. DITROPAN [Suspect]
     Dosage: ORAL
     Route: 048
     Dates: end: 20040101

REACTIONS (1)
  - DEATH [None]
